FAERS Safety Report 4870658-1 (Version None)
Quarter: 2005Q4

REPORT INFORMATION
  Report Type: 
  Country: None (occurrence: None)
  Receive Date: 20051228
  Receipt Date: 20051216
  Transmission Date: 20060501
  Serious: Yes (Hospitalization)
  Sender: FDA-Public Use
  Company Number: 2005170597

PATIENT
  Age: 83 Year
  Sex: Female

DRUGS (7)
  1. AZITHROMYCIN [Suspect]
     Indication: NASOPHARYNGITIS
     Dosage: 500 MG, ORAL
     Route: 048
     Dates: start: 20051209, end: 20051210
  2. WARFARIN (WARFARIN POTASSIUM) (WARFARIN POTASSIUM) [Suspect]
     Indication: ATRIAL FIBRILLATION
     Dosage: 2 MG, ORAL
     Route: 048
  3. AMLODIN (AMLODIPINE BESILATE) (AMLODIPINE BESILATE) [Concomitant]
  4. LASIX [Concomitant]
  5. NITOROL R (ISOSORBIDE DINITRATE) (ISOSORBIDE DINITRATE) [Concomitant]
  6. TANATRIL (IMIDAPRIL HYDROCHLORIDE) (IMIDAPRIL HYDROCHLORIDE) [Concomitant]
  7. THYRADIN-S (LEVOTHYROXINE SODIUM) (LEVOTHYROXINE SODIUM) [Concomitant]

REACTIONS (9)
  - ALANINE AMINOTRANSFERASE INCREASED [None]
  - ASPARTATE AMINOTRANSFERASE INCREASED [None]
  - BLOOD BILIRUBIN INCREASED [None]
  - CONDITION AGGRAVATED [None]
  - DEPRESSED LEVEL OF CONSCIOUSNESS [None]
  - LIVER DISORDER [None]
  - NASOPHARYNGITIS [None]
  - PROTHROMBIN TIME PROLONGED [None]
  - RENAL FAILURE CHRONIC [None]
